FAERS Safety Report 11374703 (Version 1)
Quarter: 2015Q3

REPORT INFORMATION
  Report Type: Spontaneous
  Country: US (occurrence: None)
  Receive Date: 20150812
  Receipt Date: 20150812
  Transmission Date: 20151125
  Serious: Yes (Disabling)
  Sender: FDA-Public Use
  Company Number: None

PATIENT
  Age: 49 Year
  Sex: Female
  Weight: 70.31 kg

DRUGS (1)
  1. CIPROFLOXACIN 500 MG IVAX PHARM [Suspect]
     Active Substance: CIPROFLOXACIN
     Indication: PSEUDOMONAS INFECTION
     Dosage: 1 PILL
     Route: 048
     Dates: start: 20150801, end: 20150804

REACTIONS (4)
  - Arthralgia [None]
  - Pain in extremity [None]
  - Burning sensation [None]
  - Feeling hot [None]

NARRATIVE: CASE EVENT DATE: 20150801
